FAERS Safety Report 19880567 (Version 4)
Quarter: 2021Q4

REPORT INFORMATION
  Report Type: Report from Study
  Country: FR (occurrence: FR)
  Receive Date: 20210925
  Receipt Date: 20211122
  Transmission Date: 20220303
  Serious: Yes (Hospitalization)
  Sender: FDA-Public Use
  Company Number: FR-ABBVIE-21K-056-4093097-00

PATIENT
  Age: 63 Year
  Sex: Male
  Weight: 52.9 kg

DRUGS (5)
  1. CARBIDOPA\LEVODOPA [Suspect]
     Active Substance: CARBIDOPA\LEVODOPA
     Indication: Parkinson^s disease
     Dosage: 5ML/H FROM 6H TO 22H DAILY, EXTRA DOSE: 9ML AT 6H
     Route: 050
     Dates: start: 20210914, end: 20210924
  2. CARBIDOPA\LEVODOPA [Suspect]
     Active Substance: CARBIDOPA\LEVODOPA
  3. MIDODRINE [Concomitant]
     Active Substance: MIDODRINE
     Indication: Product used for unknown indication
     Dosage: 3 TABLETS AT 8H, 2 TABLETS AT NOON, 2 TABLETS AT 16H?AFTER/SINCE 2018
  4. KARDEGIC [Concomitant]
     Active Substance: ASPIRIN DL-LYSINE
     Indication: Product used for unknown indication
     Dosage: 1 IN THE MORNING?AFTER/SINCE 2018
  5. CLOZAPINE [Concomitant]
     Active Substance: CLOZAPINE
     Indication: Product used for unknown indication
     Dosage: HALF TABLET AT 22H?AFTER/SINCE 2018

REACTIONS (16)
  - Infection [Recovering/Resolving]
  - Osteitis [Recovering/Resolving]
  - Hyperthermia [Unknown]
  - Dermatitis [Unknown]
  - Diarrhoea [Unknown]
  - Stoma site discharge [Unknown]
  - Staphylococcal infection [Recovering/Resolving]
  - Osteoporotic fracture [Unknown]
  - Axonal neuropathy [Unknown]
  - Cognitive disorder [Recovered/Resolved]
  - Device related infection [Recovered/Resolved]
  - Anaemia [Recovered/Resolved]
  - Hypotension [Unknown]
  - Neuropathic muscular atrophy [Unknown]
  - Staphylococcus test positive [Unknown]
  - Antimicrobial susceptibility test resistant [Unknown]

NARRATIVE: CASE EVENT DATE: 20210101
